FAERS Safety Report 4856831-7 (Version None)
Quarter: 2005Q4

REPORT INFORMATION
  Report Type: 
  Country: None (occurrence: None)
  Receive Date: 20051219
  Receipt Date: 20050128
  Transmission Date: 20060501
  Serious: No
  Sender: FDA-Public Use
  Company Number: US-GLAXOSMITHKLINE-A0542774A

PATIENT
  Age: 64 Year
  Sex: Female

DRUGS (3)
  1. NICODERM CQ [Suspect]
     Dates: start: 20050128, end: 20050128
  2. ATACAND [Concomitant]
  3. ATENOLOL [Concomitant]

REACTIONS (1)
  - BLOOD PRESSURE [None]
